FAERS Safety Report 6602063-1 (Version None)
Quarter: 2010Q1

REPORT INFORMATION
  Report Type: 
  Country: None (occurrence: None)
  Receive Date: 20100225
  Receipt Date: 20100211
  Transmission Date: 20100710
  Serious: Yes (Other)
  Sender: FDA-Public Use
  Company Number: PHEH2009US00450

PATIENT
  Sex: Male

DRUGS (8)
  1. ZELNORM [Suspect]
  2. DECADRON [Concomitant]
  3. ROCEPHIN [Concomitant]
  4. AVANDIA [Concomitant]
     Dosage: 8 MG, UNK
  5. LOTREL [Concomitant]
  6. BENICAR [Concomitant]
     Dosage: 4 MCI, UNK
  7. CARDIZEM [Concomitant]
  8. ARICEPT [Concomitant]

REACTIONS (11)
  - ANGINA PECTORIS [None]
  - CAROTID ARTERY STENOSIS [None]
  - CHRONIC OBSTRUCTIVE PULMONARY DISEASE [None]
  - CORONARY ARTERY BYPASS [None]
  - DIARRHOEA [None]
  - EMOTIONAL DISORDER [None]
  - EMPHYSEMA [None]
  - HYPERLIPIDAEMIA [None]
  - HYPERTENSION [None]
  - INJURY [None]
  - MENTAL STATUS CHANGES [None]
